FAERS Safety Report 4305927-7 (Version None)
Quarter: 2004Q1

REPORT INFORMATION
  Report Type: 
  Country: None (occurrence: None)
  Receive Date: 20040225
  Receipt Date: 20040213
  Transmission Date: 20041129
  Serious: Yes (Life-Threatening, Hospitalization)
  Sender: FDA-Public Use
  Company Number: 8005067

PATIENT
  Age: 25 Year
  Sex: Female
  Weight: 45 kg

DRUGS (6)
  1. KEPPRA [Suspect]
     Indication: EPILEPSY
     Dosage: 1 G 2/D PO
     Route: 048
     Dates: start: 20031211, end: 20040121
  2. KEPPRA [Suspect]
     Indication: EPILEPSY
     Dosage: 1.5 G PO
     Route: 048
     Dates: start: 20040122, end: 20040122
  3. KEPPRA [Suspect]
     Indication: EPILEPSY
     Dosage: 1 G PO
     Route: 048
     Dates: start: 20040123, end: 20040125
  4. TIMONIL - SLOW RELEASE [Suspect]
     Indication: EPILEPSY
     Dosage: 900 MG/D PO A FEW YEARS
     Route: 048
     Dates: end: 20040126
  5. VIOXX [Concomitant]
  6. TRAMADOL HCL [Concomitant]

REACTIONS (10)
  - AGRANULOCYTOSIS [None]
  - ALANINE AMINOTRANSFERASE INCREASED [None]
  - ARTHRITIS [None]
  - ASPARTATE AMINOTRANSFERASE INCREASED [None]
  - GENERAL PHYSICAL HEALTH DETERIORATION [None]
  - HAEMOGLOBIN DECREASED [None]
  - HEPATIC ENZYME INCREASED [None]
  - PERITONITIS [None]
  - PYREXIA [None]
  - SYSTEMIC LUPUS ERYTHEMATOSUS RASH [None]
